FAERS Safety Report 17676439 (Version 1)
Quarter: 2020Q2

REPORT INFORMATION
  Report Type: Spontaneous
  Country: GB (occurrence: GB)
  Receive Date: 20200416
  Receipt Date: 20200416
  Transmission Date: 20200714
  Serious: Yes (Disabling)
  Sender: FDA-Public Use
  Company Number: GB-TEVA-2020-GB-1223943

PATIENT
  Age: 27 Year
  Sex: Female
  Weight: 52.61 kg

DRUGS (1)
  1. NAPROXEN SODIUM. [Suspect]
     Active Substance: NAPROXEN SODIUM
     Route: 048
     Dates: start: 20100501, end: 20100501

REACTIONS (1)
  - Muscle spasms [Recovered/Resolved]
